FAERS Safety Report 21508450 (Version 1)
Quarter: 2022Q4

REPORT INFORMATION
  Report Type: Spontaneous
  Country: US (occurrence: None)
  Receive Date: 20221026
  Receipt Date: 20221026
  Transmission Date: 20230113
  Serious: Yes (Death, Hospitalization)
  Sender: FDA-Public Use
  Company Number: None

PATIENT
  Sex: Female
  Weight: 78.8 kg

DRUGS (1)
  1. ASPIRIN [Suspect]
     Active Substance: ASPIRIN

REACTIONS (11)
  - Disease progression [None]
  - Pleural effusion [None]
  - Dyspnoea at rest [None]
  - Dyspnoea exertional [None]
  - Tachycardia [None]
  - SARS-CoV-2 test positive [None]
  - Decreased appetite [None]
  - Fatigue [None]
  - Metastases to lymph nodes [None]
  - General physical health deterioration [None]
  - Acute respiratory failure [None]

NARRATIVE: CASE EVENT DATE: 20221003
